FAERS Safety Report 24203979 (Version 2)
Quarter: 2024Q3

REPORT INFORMATION
  Report Type: Spontaneous
  Country: JP (occurrence: JP)
  Receive Date: 20240813
  Receipt Date: 20240909
  Transmission Date: 20241017
  Serious: Yes (Other)
  Sender: RANBAXY
  Company Number: JP-SUN PHARMACEUTICAL INDUSTRIES LTD-2024R1-461628

PATIENT
  Age: 4 Year
  Sex: Male

DRUGS (11)
  1. AMPHOTERICIN B [Suspect]
     Active Substance: AMPHOTERICIN B
     Indication: Antifungal treatment
     Dosage: 5 MILLIGRAM/KILOGRAM
     Route: 065
  2. VORICONAZOLE [Suspect]
     Active Substance: VORICONAZOLE
     Indication: Aspergillus infection
     Dosage: 8 MILLIGRAM/KILOGRAM, BID
     Route: 065
  3. VORICONAZOLE [Suspect]
     Active Substance: VORICONAZOLE
     Dosage: 9.3 MILLIGRAM/KILOGRAM, BID
     Route: 065
  4. BUSULFAN [Concomitant]
     Active Substance: BUSULFAN
     Indication: Antifungal treatment
     Dosage: 4.8 MILLIGRAM, QD
     Route: 065
  5. CYCLOPHOSPHAMIDE [Concomitant]
     Active Substance: CYCLOPHOSPHAMIDE
     Indication: Antifungal treatment
     Dosage: 60 MILLIGRAM/KILOGRAM, QD
     Route: 065
  6. MELPHALAN [Concomitant]
     Active Substance: MELPHALAN
     Indication: Antifungal treatment
     Dosage: 140 MILLIGRAM/SQ. METER, QD
     Route: 065
  7. METHOTREXATE [Concomitant]
     Active Substance: METHOTREXATE
     Indication: Graft versus host disease
     Dosage: 10 MILLIGRAM/SQ. METER ON DAY 1
     Route: 065
  8. METHOTREXATE [Concomitant]
     Active Substance: METHOTREXATE
     Dosage: 10 MILLIGRAM/SQ. METER ON DAY 3 AND 6
     Route: 065
  9. TACROLIMUS [Concomitant]
     Active Substance: TACROLIMUS
     Indication: Graft versus host disease
  10. ACYCLOVIR [Concomitant]
     Active Substance: ACYCLOVIR
     Indication: Herpes virus infection
     Dosage: 5 MILLIGRAM/KILOGRAM, QD
     Route: 065
  11. DALTEPARIN SODIUM [Concomitant]
     Active Substance: DALTEPARIN SODIUM
     Indication: Venoocclusive liver disease
     Dosage: ((75 IU/KG/DAY)
     Route: 065

REACTIONS (1)
  - Condition aggravated [Unknown]
